FAERS Safety Report 8870429 (Version 1)
Quarter: 2012Q4

REPORT INFORMATION
  Report Type: 
  Country: US (occurrence: US)
  Receive Date: 20121023
  Receipt Date: 20121023
  Transmission Date: 20130627
  Serious: No
  Sender: FDA-Public Use
  Company Number: US-AMGEN-USASP2011001038

PATIENT
  Age: 38 Year
  Sex: Female

DRUGS (2)
  1. ENBREL [Suspect]
     Indication: ANKYLOSING SPONDYLITIS
     Dosage: 50 mg, qwk
     Route: 058
     Dates: start: 20080208, end: 2010
  2. LEXAPRO [Concomitant]
     Dosage: 10 mg, daily
     Route: 048

REACTIONS (3)
  - Weight decreased [Unknown]
  - Nausea [Unknown]
  - Dyspepsia [Unknown]
